FAERS Safety Report 15708186 (Version 2)
Quarter: 2018Q4

REPORT INFORMATION
  Report Type: Report from Study
  Country: US (occurrence: US)
  Receive Date: 20181211
  Receipt Date: 20181219
  Transmission Date: 20190205
  Serious: Yes (Other)
  Sender: FDA-Public Use
  Company Number: US-ROCHE-2226964

PATIENT
  Sex: Male
  Weight: 74.91 kg

DRUGS (13)
  1. CIALIS [Concomitant]
     Active Substance: TADALAFIL
     Route: 048
  2. TAMSULOSIN [Concomitant]
     Active Substance: TAMSULOSIN
     Route: 048
  3. VITAMIN E [Concomitant]
     Active Substance: .ALPHA.-TOCOPHEROL
  4. OCREVUS [Suspect]
     Active Substance: OCRELIZUMAB
     Indication: RELAPSING-REMITTING MULTIPLE SCLEROSIS
     Dosage: SPLIT DOSE ;ONGOING: NO
     Route: 065
     Dates: start: 2018, end: 2018
  5. BACLOFEN. [Concomitant]
     Active Substance: BACLOFEN
     Route: 048
     Dates: start: 20170708
  6. LECITHIN [Concomitant]
     Active Substance: LECITHIN
     Route: 048
  7. OCREVUS [Suspect]
     Active Substance: OCRELIZUMAB
     Indication: MULTIPLE SCLEROSIS
  8. VITAMIN C [Concomitant]
     Active Substance: ASCORBIC ACID
  9. LUTEIN [Concomitant]
     Active Substance: LUTEIN
     Route: 048
  10. MIRTAZAPINE. [Concomitant]
     Active Substance: MIRTAZAPINE
     Dosage: BEFORE BEDTIME FOR 30 DAYS
     Route: 048
  11. MYRBETRIQ [Concomitant]
     Active Substance: MIRABEGRON
     Route: 048
  12. PROPANOLOL [Concomitant]
     Active Substance: PROPRANOLOL HYDROCHLORIDE
     Dosage: 1 TABLET BY 20 MINUTES BEFOREMRI FOR STAGE FRIGHT
     Route: 048
  13. RITALIN [Concomitant]
     Active Substance: METHYLPHENIDATE HYDROCHLORIDE
     Dosage: START AT 1/2 TABLET 2 PER DAY
     Route: 048

REACTIONS (1)
  - Upper respiratory tract infection [Recovering/Resolving]

NARRATIVE: CASE EVENT DATE: 2018
